FAERS Safety Report 20943245 (Version 3)
Quarter: 2022Q3

REPORT INFORMATION
  Report Type: Report from Study
  Country: JP (occurrence: JP)
  Receive Date: 20220610
  Receipt Date: 20220912
  Transmission Date: 20221027
  Serious: Yes (Death)
  Sender: FDA-Public Use
  Company Number: JP-TAKEDA-2020TJP002327

PATIENT
  Age: 58 Year
  Sex: Male
  Weight: 54 kg

DRUGS (4)
  1. LEUPLIN [Suspect]
     Active Substance: LEUPROLIDE ACETATE
     Indication: Bulbospinal muscular atrophy congenital
     Dosage: 11.25 MILLIGRAM, Q3MONTHS
     Route: 058
     Dates: start: 20181127
  2. EPADEL                             /01682402/ [Concomitant]
     Indication: Dyslipidaemia
     Dosage: 1800 MILLIGRAM
     Route: 065
     Dates: start: 20181128, end: 20200911
  3. AMBROXOL HYDROCHLORIDE [Concomitant]
     Active Substance: AMBROXOL HYDROCHLORIDE
     Indication: Bulbospinal muscular atrophy congenital
     Dosage: 45 MILLIGRAM
     Route: 065
     Dates: start: 20190517
  4. OMEGA-3-ACID ETHYL ESTERS [Concomitant]
     Active Substance: OMEGA-3-ACID ETHYL ESTERS
     Indication: Product used for unknown indication
     Dosage: 2 GRAM
     Route: 065
     Dates: start: 20200911

REACTIONS (4)
  - Illness [Fatal]
  - Male sexual dysfunction [Not Recovered/Not Resolved]
  - Hypertriglyceridaemia [Recovering/Resolving]
  - Hot flush [Recovered/Resolved]

NARRATIVE: CASE EVENT DATE: 20181127
